FAERS Safety Report 4944484-9 (Version None)
Quarter: 2006Q1

REPORT INFORMATION
  Report Type: 
  Country: None (occurrence: None)
  Receive Date: 20060315
  Receipt Date: 20060309
  Transmission Date: 20060701
  Serious: Yes (Other)
  Sender: FDA-Public Use
  Company Number: NO-SANOFI-SYNTHELABO-F01200600731

PATIENT

DRUGS (1)
  1. ELOXATIN [Suspect]
     Indication: COLON CANCER STAGE III

REACTIONS (1)
  - HEPATIC VEIN THROMBOSIS [None]
